FAERS Safety Report 4690157-X (Version None)
Quarter: 2005Q2

REPORT INFORMATION
  Report Type: 
  Country: None (occurrence: None)
  Receive Date: 20050613
  Receipt Date: 20050513
  Transmission Date: 20051028
  Serious: Yes (Hospitalization)
  Sender: FDA-Public Use
  Company Number: USA-2005-0019989

PATIENT
  Age: 1 Year
  Sex: Male

DRUGS (4)
  1. CEFDITOREN PIVOXIL (SIMILAR TO NDA 21-222)(CEFDITOREN PIVOXIL) UNKNOWN [Suspect]
     Indication: OTITIS MEDIA
     Dosage: 120 MG, ORAL
     Route: 048
  2. CEFDITOREN PIVOXIL (SIMILAR TO NDA 21-222)(CEFDITOREN PIVOXIL) UNKNOWN [Suspect]
     Indication: UPPER RESPIRATORY TRACT INFLAMMATION
     Dosage: 120 MG, ORAL
     Route: 048
  3. TOMIRON (CEFTERAM PIVOXIL) [Concomitant]
  4. FLOMOX (CEFCAPENE PIVOXIL HYDROCHLORIDE) [Concomitant]

REACTIONS (4)
  - CARNITINE DECREASED [None]
  - CONVULSION [None]
  - HYPOGLYCAEMIA [None]
  - LABORATORY TEST ABNORMAL [None]
